FAERS Safety Report 15481564 (Version 1)
Quarter: 2018Q4

REPORT INFORMATION
  Report Type: Spontaneous
  Country: US (occurrence: US)
  Receive Date: 20181010
  Receipt Date: 20181010
  Transmission Date: 20190205
  Serious: No
  Sender: FDA-Public Use
  Company Number: US-ACCORD-063302

PATIENT
  Age: 83 Year
  Sex: Female

DRUGS (1)
  1. GLIMEPRIDE ACCORD [Suspect]
     Active Substance: GLIMEPIRIDE
     Indication: PRODUCT USED FOR UNKNOWN INDICATION
     Dosage: STRENGTH: 1 MG

REACTIONS (5)
  - Nausea [Unknown]
  - Drug intolerance [Unknown]
  - Muscle spasms [Unknown]
  - Drug ineffective [Unknown]
  - Vomiting [Unknown]
